FAERS Safety Report 7142941-0 (Version None)
Quarter: 2010Q4

REPORT INFORMATION
  Report Type: 
  Country: None (occurrence: None)
  Receive Date: 20101208
  Receipt Date: 20091103
  Transmission Date: 20110411
  Serious: Yes (Death)
  Sender: FDA-Public Use
  Company Number: US-ACTELION-A-US2009-29969

PATIENT

DRUGS (3)
  1. ILOPROST INHALATION SOLUTION UNKNOWN US [Suspect]
     Indication: PULMONARY ARTERIAL HYPERTENSION
     Dosage: 10 UG, UNK
     Route: 055
     Dates: start: 20081030
  2. TRACLEER [Concomitant]
     Route: 048
     Dates: start: 20080402
  3. REVATIO [Concomitant]

REACTIONS (1)
  - DEATH [None]
